FAERS Safety Report 9251447 (Version 1)
Quarter: 2013Q1

REPORT INFORMATION
  Report Type: Spontaneous
  Country: US (occurrence: None)
  Receive Date: 20130305
  Receipt Date: 20130305
  Transmission Date: 20140127
  Serious: Yes (Other)
  Sender: FDA-Public Use
  Company Number: 163-21880-12082043

PATIENT
  Age: 70 Year
  Sex: Female
  Weight: 97.52 kg

DRUGS (9)
  1. REVLIMID [Suspect]
     Indication: PLASMA CELL MYELOMA
     Dosage: 10 MG, 1 IN 1 D, PO
     Route: 048
     Dates: start: 20120809
  2. CLARITIN (LORATADINE) (UNKNOWN) [Concomitant]
  3. IBUPROFEN (IBUPROFEN) (UNKNOWN) [Concomitant]
  4. LISINOPRIL (LISINOPRIL) (UNKNOWN) [Concomitant]
  5. PENTAMIDINE (PENTAMIDINE) (UNKNOWN) [Concomitant]
  6. SIMVASTATIN [Concomitant]
  7. SPIRONOLACTONE (SPIRONOLACTONE) (UNKNOWN) [Concomitant]
  8. TERAZOSIN (TERAZOSIN) (UNKNOWN) [Concomitant]
  9. ULTRAM (TRAMADOL HYDROCHLORIDE) (UNKNOWN) [Concomitant]

REACTIONS (2)
  - Hypotension [None]
  - Dizziness [None]
